FAERS Safety Report 4947711-7 (Version None)
Quarter: 2006Q1

REPORT INFORMATION
  Report Type: 
  Country: None (occurrence: None)
  Receive Date: 20060314
  Receipt Date: 20060301
  Transmission Date: 20060701
  Serious: Yes (Disabling, Other)
  Sender: FDA-Public Use
  Company Number: 2006030855

PATIENT
  Sex: Male
  Weight: 72.5755 kg

DRUGS (2)
  1. DILANTIN [Suspect]
     Indication: CONVULSION
     Dates: start: 19810101
  2. NEURONTIN [Suspect]
     Indication: CONVULSION
     Dosage: SEE IMAGE
     Route: 048

REACTIONS (7)
  - DRUG INEFFECTIVE [None]
  - HYPOACUSIS [None]
  - LOSS OF EMPLOYMENT [None]
  - NERVOUS SYSTEM DISORDER [None]
  - PETIT MAL EPILEPSY [None]
  - POOR QUALITY DRUG ADMINISTERED [None]
  - SCAR [None]
